FAERS Safety Report 19066645 (Version 1)
Quarter: 2021Q1

REPORT INFORMATION
  Report Type: Spontaneous
  Country: CA (occurrence: CA)
  Receive Date: 20210328
  Receipt Date: 20210328
  Transmission Date: 20210420
  Serious: Yes (Other)
  Sender: FDA-Public Use
  Company Number: CA-JNJFOC-20210342067

PATIENT

DRUGS (1)
  1. TYLENOL [Suspect]
     Active Substance: ACETAMINOPHEN
     Indication: PRODUCT USED FOR UNKNOWN INDICATION
     Route: 065

REACTIONS (6)
  - Hyperhidrosis [Unknown]
  - Hypersensitivity [Unknown]
  - Abdominal pain upper [Unknown]
  - Loss of consciousness [Recovered/Resolved]
  - Tremor [Unknown]
  - Vomiting [Unknown]
